FAERS Safety Report 25140510 (Version 1)
Quarter: 2025Q1

REPORT INFORMATION
  Report Type: Spontaneous
  Country: IT (occurrence: IT)
  Receive Date: 20250331
  Receipt Date: 20250331
  Transmission Date: 20250409
  Serious: Yes (Other)
  Sender: HIKMA
  Company Number: None

PATIENT
  Age: 79 Year
  Sex: Male
  Weight: 55 kg

DRUGS (3)
  1. ASPIRIN [Suspect]
     Active Substance: ASPIRIN
     Indication: Product used for unknown indication
     Route: 048
  2. GEMCITABINE [Suspect]
     Active Substance: GEMCITABINE
     Indication: Bladder transitional cell carcinoma
     Route: 042
     Dates: start: 20240910
  3. CARBOPLATIN [Concomitant]
     Active Substance: CARBOPLATIN
     Indication: Bladder transitional cell carcinoma
     Route: 042

REACTIONS (1)
  - Rectal haemorrhage [Recovering/Resolving]

NARRATIVE: CASE EVENT DATE: 20240918
